FAERS Safety Report 25734333 (Version 1)
Quarter: 2025Q3

REPORT INFORMATION
  Report Type: Spontaneous
  Country: US (occurrence: US)
  Receive Date: 20250828
  Receipt Date: 20250828
  Transmission Date: 20251021
  Serious: Yes (Other)
  Sender: SHILPA MEDICARE
  Company Number: US-KOANAAP-SML-US-2025-00403

PATIENT
  Age: 64 Year
  Sex: Male

DRUGS (2)
  1. IMATINIB [Suspect]
     Active Substance: IMATINIB
     Indication: Nasal sinus cancer
  2. NIVOLUMAB [Suspect]
     Active Substance: NIVOLUMAB
     Indication: Nasal sinus cancer

REACTIONS (6)
  - Orbital space occupying lesion [Unknown]
  - Central nervous system lesion [Unknown]
  - Abdominal mass [Unknown]
  - Adrenal mass [Unknown]
  - Treatment failure [Unknown]
  - Malignant neoplasm progression [Unknown]
